FAERS Safety Report 10610904 (Version 4)
Quarter: 2017Q4

REPORT INFORMATION
  Report Type: Report from Study
  Country: JP (occurrence: JP)
  Receive Date: 20141126
  Receipt Date: 20171027
  Transmission Date: 20180320
  Serious: Yes (Death, Life-Threatening, Hospitalization, Other)
  Sender: FDA-Public Use
  Company Number: PHHY2011JP60702

PATIENT
  Age: 63 Year
  Sex: Male

DRUGS (12)
  1. AFINITOR [Suspect]
     Active Substance: EVEROLIMUS
     Indication: METASTASES TO KIDNEY
     Dosage: UNK
     Route: 048
     Dates: start: 201202, end: 20120305
  2. AFINITOR [Suspect]
     Active Substance: EVEROLIMUS
     Indication: METASTASES TO LUNG
     Dosage: 10 MG, QD
     Route: 048
     Dates: start: 20120508, end: 20120525
  3. AFINITOR [Suspect]
     Active Substance: EVEROLIMUS
     Indication: RENAL CANCER
  4. SUTENT [Concomitant]
     Active Substance: SUNITINIB MALATE
     Indication: METASTATIC RENAL CELL CARCINOMA
     Dosage: 50 MG, UNK
     Route: 048
     Dates: start: 20100107, end: 201009
  5. AFINITOR [Suspect]
     Active Substance: EVEROLIMUS
     Indication: METASTATIC RENAL CELL CARCINOMA
     Dosage: 10 MG, QD
     Route: 048
     Dates: start: 20101001, end: 20110208
  6. SUTENT [Concomitant]
     Active Substance: SUNITINIB MALATE
     Dosage: 50 MG, UNK
     Route: 065
     Dates: start: 20110603
  7. SUTENT [Concomitant]
     Active Substance: SUNITINIB MALATE
     Dosage: 400 MG, UNK
     Route: 065
     Dates: start: 20111201
  8. AFINITOR [Suspect]
     Active Substance: EVEROLIMUS
     Indication: METASTASES TO PANCREAS
     Dosage: 5 MG, QD
     Route: 048
     Dates: start: 20110215, end: 20110603
  9. ZOMETA [Concomitant]
     Active Substance: ZOLEDRONIC ACID
     Indication: PRODUCT USED FOR UNKNOWN INDICATION
     Dosage: 4 MG, UNK
     Route: 041
     Dates: start: 20101001
  10. AFINITOR [Suspect]
     Active Substance: EVEROLIMUS
     Indication: METASTASES TO BONE
  11. SORAFENIB [Concomitant]
     Active Substance: SORAFENIB
     Indication: METASTATIC RENAL CELL CARCINOMA
     Dosage: UNK
     Route: 048
     Dates: start: 200809
  12. SUTENT [Concomitant]
     Active Substance: SUNITINIB MALATE
     Dosage: 25 MG, UNK
     Route: 065
     Dates: start: 20110701

REACTIONS (17)
  - General physical health deterioration [Fatal]
  - Metastases to central nervous system [Fatal]
  - Metastases to bone [Unknown]
  - Metastases to lung [Unknown]
  - Blood creatine phosphokinase increased [Not Recovered/Not Resolved]
  - Blood cholesterol increased [Recovered/Resolved]
  - Meningitis [Fatal]
  - Metastases to lymph nodes [Unknown]
  - Stomatitis [Recovered/Resolved]
  - Thrombocytopenia [Recovered/Resolved]
  - Blood lactate dehydrogenase increased [Not Recovered/Not Resolved]
  - Malignant neoplasm progression [Fatal]
  - Metastases to pancreas [Unknown]
  - Metastases to liver [Unknown]
  - Metastases to pelvis [Unknown]
  - Platelet count decreased [Recovered/Resolved]
  - Lymphadenopathy [Unknown]

NARRATIVE: CASE EVENT DATE: 20101022
